FAERS Safety Report 9708447 (Version 2)
Quarter: 2013Q4

REPORT INFORMATION
  Report Type: Spontaneous
  Country: US (occurrence: US)
  Receive Date: 20131125
  Receipt Date: 20131220
  Transmission Date: 20140711
  Serious: Yes (Death)
  Sender: FDA-Public Use
  Company Number: US-PFIZER INC-2013334836

PATIENT
  Age: 67 Year
  Sex: Female
  Weight: 56.69 kg

DRUGS (12)
  1. PROTONIX [Suspect]
     Indication: RAYNAUD^S PHENOMENON
     Dosage: 40 MG, 1X/DAY
  2. NEURONTIN [Suspect]
     Indication: RAYNAUD^S PHENOMENON
     Dosage: 200 MG, 1X/DAY
  3. PROCARDIA XL [Suspect]
     Indication: LEFT VENTRICULAR HYPERTROPHY
     Dosage: 30 MG, DAILY
  4. PROCARDIA XL [Suspect]
     Indication: MITRAL VALVE INCOMPETENCE
  5. PROCARDIA XL [Suspect]
     Indication: PULMONARY HYPERTENSION
  6. ATIVAN [Concomitant]
     Indication: SLEEP DISORDER
     Dosage: 0.5 MG, AS NEEDED
  7. COLACE [Concomitant]
     Indication: LAXATIVE SUPPORTIVE CARE
     Dosage: 100 MG, 2X/DAY
  8. LASIX [Concomitant]
     Indication: DIURETIC THERAPY
     Dosage: 20 MG, ONCE OR TWICE EVERY TWO WEEKS
  9. LORTAB [Concomitant]
     Indication: PAIN
     Dosage: 7.5/500MG, UNK
  10. LORTAB [Concomitant]
     Indication: OSTEOMYELITIS
  11. LORTAB [Concomitant]
     Indication: RAYNAUD^S PHENOMENON
  12. SPIRONOLACTONE [Concomitant]
     Indication: DIURETIC THERAPY
     Dosage: 25 MG, ALTERNATE DAY

REACTIONS (3)
  - Death [Fatal]
  - Malaise [Unknown]
  - Off label use [Unknown]
